FAERS Safety Report 25718274 (Version 1)
Quarter: 2025Q3

REPORT INFORMATION
  Report Type: Spontaneous
  Country: US (occurrence: US)
  Receive Date: 20250823
  Receipt Date: 20250823
  Transmission Date: 20251021
  Serious: Yes (Other)
  Sender: AUROBINDO
  Company Number: US-AUROBINDO-AUR-APL-2025-042861

PATIENT
  Age: 48 Year
  Sex: Male

DRUGS (6)
  1. NICARDIPINE [Suspect]
     Active Substance: NICARDIPINE
     Indication: Secondary hypertension
     Route: 041
  2. AMLODIPINE [Suspect]
     Active Substance: AMLODIPINE BESYLATE
     Indication: Secondary hypertension
     Route: 065
  3. HYDRALAZINE HYDROCHLORIDE [Suspect]
     Active Substance: HYDRALAZINE HYDROCHLORIDE
     Indication: Secondary hypertension
     Route: 065
  4. LOSARTAN [Suspect]
     Active Substance: LOSARTAN
     Indication: Secondary hypertension
     Route: 065
  5. METOPROLOL [Suspect]
     Active Substance: METOPROLOL
     Indication: Secondary hypertension
     Route: 065
  6. TERAZOSIN [Suspect]
     Active Substance: TERAZOSIN HYDROCHLORIDE
     Indication: Secondary hypertension
     Route: 065

REACTIONS (3)
  - Rebound effect [Unknown]
  - Hypertensive crisis [Unknown]
  - Drug ineffective [Unknown]
